FAERS Safety Report 5977372-X (Version None)
Quarter: 2008Q4

REPORT INFORMATION
  Report Type: 
  Country: None (occurrence: None)
  Receive Date: 20081203
  Receipt Date: 20081125
  Transmission Date: 20090506
  Serious: Yes (Other)
  Sender: FDA-Public Use
  Company Number: PHHY2008CN29639

PATIENT
  Age: 30 Year
  Sex: Male

DRUGS (1)
  1. SEBIVO [Suspect]
     Indication: HEPATITIS B
     Dosage: 600 MG, QD
     Route: 048
     Dates: start: 20080601

REACTIONS (6)
  - BLOOD CREATINE PHOSPHOKINASE MB INCREASED [None]
  - CARDIOVASCULAR DISORDER [None]
  - ELECTROCARDIOGRAM ABNORMAL [None]
  - HEART RATE INCREASED [None]
  - NODAL ARRHYTHMIA [None]
  - PALPITATIONS [None]
